FAERS Safety Report 5744123-3 (Version None)
Quarter: 2008Q2

REPORT INFORMATION
  Report Type: 
  Country: None (occurrence: None)
  Receive Date: 20080520
  Receipt Date: 20080516
  Transmission Date: 20081010
  Serious: Yes (Other)
  Sender: FDA-Public Use
  Company Number: B0517043A

PATIENT
  Age: 67 Year
  Sex: Male

DRUGS (9)
  1. VALTREX [Suspect]
     Indication: ORAL HERPES
     Dosage: 500MG TWICE PER DAY
     Route: 048
     Dates: start: 20080410, end: 20080411
  2. EPADEL [Concomitant]
     Dosage: 1800MG PER DAY
     Route: 048
  3. CALTAN [Concomitant]
     Dosage: 1500MG PER DAY
     Route: 048
  4. NORVASC [Concomitant]
     Dosage: 10MG PER DAY
     Route: 048
  5. ALFAROL [Concomitant]
     Dosage: .25MCG PER DAY
     Route: 048
  6. OLMETEC [Concomitant]
     Dosage: 20MG PER DAY
     Route: 048
  7. INHIBACE [Concomitant]
     Dosage: 2MG PER DAY
     Route: 048
  8. JUVELA N [Concomitant]
     Dosage: 200MG PER DAY
     Route: 048
  9. RIVOTRIL [Concomitant]
     Dosage: 1MG PER DAY
     Route: 048

REACTIONS (7)
  - ANOREXIA [None]
  - COLOUR BLINDNESS [None]
  - HALLUCINATION, VISUAL [None]
  - NERVOUS SYSTEM DISORDER [None]
  - PHOTOPSIA [None]
  - VISUAL DISTURBANCE [None]
  - VOMITING [None]
